FAERS Safety Report 13777813 (Version 1)
Quarter: 2017Q3

REPORT INFORMATION
  Report Type: Spontaneous
  Country: US (occurrence: US)
  Receive Date: 20170721
  Receipt Date: 20170721
  Transmission Date: 20171127
  Serious: Yes (Other)
  Sender: FDA-Public Use
  Company Number: US-TEVA-790201USA

PATIENT
  Sex: Female

DRUGS (3)
  1. AVONEX [Suspect]
     Active Substance: INTERFERON BETA-1A
     Dosage: UNKNOWN FORM OF STRENGTH
  2. COPAXONE [Suspect]
     Active Substance: GLATIRAMER ACETATE
     Dosage: UNKNOWN FORM OF STRENGTH
  3. REBIF [Suspect]
     Active Substance: INTERFERON BETA-1A
     Dosage: UNKNOWN FORM OF STRENGTH

REACTIONS (1)
  - Multiple sclerosis [Recovered/Resolved]
